FAERS Safety Report 12621042 (Version 3)
Quarter: 2016Q4

REPORT INFORMATION
  Report Type: Spontaneous
  Country: US (occurrence: IN)
  Receive Date: 20160804
  Receipt Date: 20161007
  Transmission Date: 20170207
  Serious: Yes (Hospitalization)
  Sender: FDA-Public Use
  Company Number: US-PFIZER INC-2016342001

PATIENT
  Age: 61 Year
  Sex: Male

DRUGS (2)
  1. ZITHROMAX [Suspect]
     Active Substance: AZITHROMYCIN DIHYDRATE
     Indication: SINUSITIS BACTERIAL
     Dosage: 500 MG, SINGLE
     Route: 048
     Dates: start: 20160516
  2. ZITHROMAX [Suspect]
     Active Substance: AZITHROMYCIN DIHYDRATE
     Dosage: 250 MG, 1X/DAY
     Dates: end: 20160518

REACTIONS (6)
  - Skin exfoliation [Unknown]
  - Hypoaesthesia [Unknown]
  - Peripheral swelling [Recovered/Resolved]
  - Nerve injury [Unknown]
  - Hypersensitivity [Not Recovered/Not Resolved]
  - Erythema [Recovered/Resolved]

NARRATIVE: CASE EVENT DATE: 20160516
